FAERS Safety Report 10475796 (Version 2)
Quarter: 2015Q1

REPORT INFORMATION
  Report Type: Spontaneous
  Country: US (occurrence: US)
  Receive Date: 20140925
  Receipt Date: 20150121
  Transmission Date: 20150720
  Serious: No
  Sender: FDA-Public Use
  Company Number: US-GLAXOSMITHKLINE-A1052296A

PATIENT
  Sex: Male

DRUGS (4)
  1. FLOVENT [Suspect]
     Active Substance: FLUTICASONE PROPIONATE
     Indication: RESPIRATORY DISORDER
     Route: 055
     Dates: start: 20030618
  2. COREG [Suspect]
     Active Substance: CARVEDILOL
     Indication: ATRIAL FIBRILLATION
     Route: 065
     Dates: start: 20030618
  3. LOVAZA [Suspect]
     Active Substance: OMEGA-3-ACID ETHYL ESTERS
     Indication: CARDIOVASCULAR DISORDER
     Dosage: 1 G. UNKNOWN DOSING.
     Route: 065
     Dates: start: 20030618
  4. FLONASE [Suspect]
     Active Substance: FLUTICASONE PROPIONATE
     Indication: RESPIRATORY DISORDER
     Route: 065
     Dates: start: 20030618

REACTIONS (5)
  - Dysgraphia [Unknown]
  - Cardiac disorder [Unknown]
  - Weight decreased [Unknown]
  - Anxiety [Unknown]
  - Arthritis [Unknown]
